FAERS Safety Report 7842557-4 (Version None)
Quarter: 2011Q4

REPORT INFORMATION
  Report Type: 
  Country: None (occurrence: None)
  Receive Date: 20111021
  Receipt Date: 20111021
  Transmission Date: 20120403
  Serious: No
  Sender: FDA-Public Use
  Company Number: None

PATIENT
  Sex: Female
  Weight: 96.6162 kg

DRUGS (1)
  1. TRAMADOL HCL [Suspect]
     Indication: SPINAL COLUMN STENOSIS
     Dosage: 50MG 1 OR 2 TIMES EVERY 6 HOURS PO
     Route: 048
     Dates: start: 20060131

REACTIONS (1)
  - INADEQUATE ANALGESIA [None]
